FAERS Safety Report 9702806 (Version 2)
Quarter: 2013Q4

REPORT INFORMATION
  Report Type: Report from Study
  Country: US (occurrence: US)
  Receive Date: 20131121
  Receipt Date: 20131125
  Transmission Date: 20140711
  Serious: Yes (Hospitalization)
  Sender: FDA-Public Use
  Company Number: US-GLAXOSMITHKLINE-A1050691A

PATIENT
  Age: 53 Year
  Sex: Female
  Weight: 112.7 kg

DRUGS (11)
  1. PAZOPANIB [Suspect]
     Indication: SARCOMA METASTATIC
     Dosage: 800MG PER DAY
     Route: 048
     Dates: start: 20130823
  2. TRAMETINIB [Suspect]
     Indication: SARCOMA METASTATIC
     Dosage: 2MG PER DAY
     Route: 048
  3. TRICOR [Concomitant]
     Dosage: 145MG PER DAY
  4. NORCO [Concomitant]
  5. SYNTHROID [Concomitant]
     Dosage: 50MCG PER DAY
  6. KLOR CON [Concomitant]
     Dosage: 20MEQ TWICE PER DAY
  7. VESICARE [Concomitant]
     Dosage: 5MG PER DAY
  8. COMPAZINE [Concomitant]
  9. SILVADENE [Concomitant]
  10. DESONIDE [Concomitant]
  11. NEURONTIN [Concomitant]
     Dosage: 600MG THREE TIMES PER DAY

REACTIONS (1)
  - Confusional state [Recovered/Resolved]
